FAERS Safety Report 6694722 (Version 2)
Quarter: 2021Q2

REPORT INFORMATION
  Report Type: Spontaneous
  Country: NL (occurrence: NL)
  Receive Date: 20080709
  Receipt Date: 20210422
  Transmission Date: 20210717
  Serious: Yes (Other)
  Sender: FDA-Public Use
  Company Number: NL-PFIZER INC-2008055145

PATIENT
  Age: 51 Year
  Sex: Female
  Weight: 74 kg

DRUGS (7)
  1. GRANISETRON [Concomitant]
     Active Substance: GRANISETRON
  2. VALPROIC ACID. [Interacting]
     Active Substance: VALPROIC ACID
     Dosage: 300 MG, 2X/DAY
  3. DEXAMETHASONE. [Concomitant]
     Active Substance: DEXAMETHASONE
  4. ATROPINE. [Concomitant]
     Active Substance: ATROPINE
     Indication: CHOLINERGIC SYNDROME
  5. IRINOTECAN HCL [Suspect]
     Active Substance: IRINOTECAN HYDROCHLORIDE
     Dosage: THREE?WEEKLY SCHEDULE
     Route: 042
  6. IRINOTECAN HCL [Interacting]
     Active Substance: IRINOTECAN HYDROCHLORIDE
     Route: 042
  7. IRINOTECAN HCL [Interacting]
     Active Substance: IRINOTECAN HYDROCHLORIDE
     Route: 042

REACTIONS (4)
  - Neutropenia [Unknown]
  - Hepatotoxicity [Unknown]
  - Drug interaction [Unknown]
  - Neuropathy peripheral [Unknown]
